FAERS Safety Report 4674230-8 (Version None)
Quarter: 2005Q2

REPORT INFORMATION
  Report Type: 
  Country: None (occurrence: None)
  Receive Date: 20050526
  Receipt Date: 20050512
  Transmission Date: 20051028
  Serious: Yes (Hospitalization, Other)
  Sender: FDA-Public Use
  Company Number: PHFR2005GB01795

PATIENT
  Age: 59 Year
  Sex: Male

DRUGS (2)
  1. METFORMIN [Concomitant]
     Indication: DIABETES MELLITUS
  2. CLOZARIL [Suspect]
     Indication: SCHIZOPHRENIA
     Dosage: 650MG/DAY
     Route: 048
     Dates: start: 20010116

REACTIONS (8)
  - BLOOD URINE PRESENT [None]
  - CONFUSIONAL STATE [None]
  - CONSTIPATION [None]
  - DYSKINESIA [None]
  - MALAISE [None]
  - MUSCLE SPASMS [None]
  - POLYURIA [None]
  - RENAL FAILURE [None]
